FAERS Safety Report 12668916 (Version 3)
Quarter: 2018Q3

REPORT INFORMATION
  Report Type: Report from Study
  Country: BR (occurrence: BR)
  Receive Date: 20160819
  Receipt Date: 20180710
  Transmission Date: 20181010
  Serious: Yes (Life-Threatening, Hospitalization, Other)
  Sender: FDA-Public Use
  Company Number: PHHY2015BR071638

PATIENT
  Sex: Female
  Weight: 61 kg

DRUGS (11)
  1. AFINITOR [Suspect]
     Active Substance: EVEROLIMUS
     Dosage: UNK
     Route: 065
     Dates: start: 20150925
  2. SANDOSTATIN LAR DEPOT [Suspect]
     Active Substance: OCTREOTIDE ACETATE
     Indication: NEUROENDOCRINE TUMOUR
     Dosage: 2 DF (2 AMPOULES) QMO (EVERY 28 DAYS)
     Route: 030
     Dates: start: 20141024
  3. SANDOSTATIN LAR DEPOT [Suspect]
     Active Substance: OCTREOTIDE ACETATE
     Dosage: UNK
     Route: 065
     Dates: start: 20150925
  4. SANDOSTATIN LAR DEPOT [Suspect]
     Active Substance: OCTREOTIDE ACETATE
     Dosage: 60 MG, QMO
     Route: 030
     Dates: start: 201804
  5. LASIX [Concomitant]
     Active Substance: FUROSEMIDE
     Indication: PRODUCT USED FOR UNKNOWN INDICATION
     Dosage: 2 DF, QD
     Route: 048
     Dates: start: 2015
  6. AFINITOR [Suspect]
     Active Substance: EVEROLIMUS
     Indication: NEUROENDOCRINE TUMOUR
     Dosage: 1 DF OF 10 MG, QD
     Route: 048
     Dates: start: 20141024
  7. SANDOSTATIN LAR DEPOT [Suspect]
     Active Substance: OCTREOTIDE ACETATE
     Dosage: 30 MG, 2 DF, QMO
     Route: 030
     Dates: start: 201803, end: 201804
  8. DIGOXIN. [Concomitant]
     Active Substance: DIGOXIN
     Indication: CARDIAC DISORDER
     Dosage: 1 DF, QD
     Route: 048
     Dates: start: 2015
  9. AFINITOR [Suspect]
     Active Substance: EVEROLIMUS
     Dosage: 1 DF OF 10 MG, QOD
     Route: 048
     Dates: start: 201803, end: 201806
  10. OMEPRAZOLE. [Concomitant]
     Active Substance: OMEPRAZOLE
     Indication: GASTRIC DISORDER
     Dosage: 1 DF, QD
     Route: 048
     Dates: start: 2011
  11. DIPYRONE [Concomitant]
     Active Substance: DIPYRONE
     Indication: PAIN
     Dosage: 6 DF, QD
     Route: 048

REACTIONS (22)
  - Muscle atrophy [Recovering/Resolving]
  - Malaise [Recovering/Resolving]
  - Incorrect dose administered [Unknown]
  - Drug ineffective [Unknown]
  - Carcinoid crisis [Recovered/Resolved]
  - Miliaria [Recovering/Resolving]
  - Swelling face [Recovering/Resolving]
  - Blood pressure decreased [Recovering/Resolving]
  - Lung infection [Recovered/Resolved]
  - Apparent death [Recovering/Resolving]
  - Swelling [Recovering/Resolving]
  - Syncope [Recovering/Resolving]
  - Injection site pain [Recovering/Resolving]
  - Heart valve stenosis [Recovered/Resolved]
  - Lung disorder [Unknown]
  - Dizziness [Recovering/Resolving]
  - Nausea [Recovering/Resolving]
  - Eye swelling [Recovering/Resolving]
  - Generalised erythema [Recovered/Resolved]
  - Tumour necrosis [Unknown]
  - Fatigue [Recovering/Resolving]
  - Gait disturbance [Recovering/Resolving]

NARRATIVE: CASE EVENT DATE: 2015
